FAERS Safety Report 17988126 (Version 3)
Quarter: 2020Q3

REPORT INFORMATION
  Report Type: Spontaneous
  Country: BR (occurrence: BR)
  Receive Date: 20200707
  Receipt Date: 20200909
  Transmission Date: 20201103
  Serious: Yes (Hospitalization)
  Sender: FDA-Public Use
  Company Number: BR-EMD SERONO-9172758

PATIENT
  Age: 13 Year
  Sex: Male

DRUGS (2)
  1. ANASTROZOLE. [Concomitant]
     Active Substance: ANASTROZOLE
     Indication: EPIPHYSES PREMATURE FUSION
     Dates: start: 201909, end: 202005
  2. SAIZEN [Suspect]
     Active Substance: SOMATROPIN
     Indication: SHORT STATURE
     Route: 058
     Dates: start: 20190227, end: 20200513

REACTIONS (4)
  - Hemiparesis [Recovering/Resolving]
  - Acute disseminated encephalomyelitis [Unknown]
  - Hypokinesia [Unknown]
  - Off label use [Recovered/Resolved]

NARRATIVE: CASE EVENT DATE: 20190227
